FAERS Safety Report 14350197 (Version 1)
Quarter: 2018Q1

REPORT INFORMATION
  Report Type: Spontaneous
  Country: US (occurrence: US)
  Receive Date: 20180103
  Receipt Date: 20180103
  Transmission Date: 20180509
  Serious: Yes (Hospitalization)
  Sender: FDA-Public Use
  Company Number: None

PATIENT
  Age: 80 Year
  Sex: Male
  Weight: 65.25 kg

DRUGS (2)
  1. TADALAFIL OR PLACEBO IND EXEMPT APPROVED PRODUCT [Suspect]
     Active Substance: TADALAFIL
     Indication: CHRONIC OBSTRUCTIVE PULMONARY DISEASE
     Route: 048
     Dates: start: 20170821
  2. TADALAFIL OR PLACEBO IND EXEMPT APPROVED PRODUCT [Suspect]
     Active Substance: TADALAFIL
     Indication: PULMONARY HYPERTENSION
     Route: 048
     Dates: start: 20170821

REACTIONS (2)
  - Coronavirus test positive [None]
  - Upper respiratory tract infection [None]

NARRATIVE: CASE EVENT DATE: 20180103
